FAERS Safety Report 16971208 (Version 2)
Quarter: 2019Q4

REPORT INFORMATION
  Report Type: Report from Study
  Country: US (occurrence: US)
  Receive Date: 20191029
  Receipt Date: 20191209
  Transmission Date: 20200122
  Serious: No
  Sender: FDA-Public Use
  Company Number: US-JNJFOC-20191030404

PATIENT
  Age: 32 Year
  Sex: Female
  Weight: 53.57 kg

DRUGS (10)
  1. WELLBUTRIN [Concomitant]
     Active Substance: BUPROPION HYDROCHLORIDE
     Indication: MAJOR DEPRESSION
  2. PROZAC [Concomitant]
     Active Substance: FLUOXETINE HYDROCHLORIDE
     Indication: MAJOR DEPRESSION
  3. PROVIGIL [Concomitant]
     Active Substance: MODAFINIL
  4. SPRAVATO [Suspect]
     Active Substance: ESKETAMINE
     Indication: MAJOR DEPRESSION
  5. BUSPAR [Concomitant]
     Active Substance: BUSPIRONE HYDROCHLORIDE
     Indication: MAJOR DEPRESSION
  6. TOPAMAX [Concomitant]
     Active Substance: TOPIRAMATE
  7. SPRAVATO [Suspect]
     Active Substance: ESKETAMINE
     Indication: DEPRESSION
  8. BUSPAR [Concomitant]
     Active Substance: BUSPIRONE HYDROCHLORIDE
     Indication: ANXIETY
  9. NALTREXONE [Concomitant]
     Active Substance: NALTREXONE
  10. KLONOPIN [Concomitant]
     Active Substance: CLONAZEPAM
     Dosage: AS REQUIRED

REACTIONS (4)
  - Hypotension [Recovered/Resolved]
  - Nausea [Recovered/Resolved]
  - Sedation [Recovered/Resolved]
  - Dissociation [Recovered/Resolved]

NARRATIVE: CASE EVENT DATE: 20191017
